FAERS Safety Report 9918221 (Version 1)
Quarter: 2014Q1

REPORT INFORMATION
  Report Type: Spontaneous
  Country: US (occurrence: US)
  Receive Date: 20140224
  Receipt Date: 20140224
  Transmission Date: 20141002
  Serious: Yes (Hospitalization)
  Sender: FDA-Public Use
  Company Number: US-ROCHE-1349025

PATIENT
  Age: 62 Year
  Sex: Female

DRUGS (2)
  1. VEMURAFENIB [Suspect]
     Indication: MALIGNANT MELANOMA
     Route: 065
     Dates: start: 20130108
  2. NIVOLUMAB [Suspect]
     Indication: MALIGNANT MELANOMA
     Route: 065
     Dates: start: 20121105, end: 20121217

REACTIONS (5)
  - Hypersensitivity [Recovering/Resolving]
  - Multi-organ disorder [Recovering/Resolving]
  - Guillain-Barre syndrome [Recovering/Resolving]
  - Rash pruritic [Recovered/Resolved]
  - Hypothyroidism [Recovered/Resolved]
